FAERS Safety Report 19788341 (Version 2)
Quarter: 2021Q3

REPORT INFORMATION
  Report Type: Spontaneous
  Country: CN (occurrence: CN)
  Receive Date: 20210903
  Receipt Date: 20210915
  Transmission Date: 20211014
  Serious: Yes (Death, Hospitalization)
  Sender: FDA-Public Use
  Company Number: CN-CELGENEUS-CHN-20210804592

PATIENT
  Age: 57 Year
  Sex: Male
  Weight: 75 kg

DRUGS (14)
  1. LENALIDOMIDE [Suspect]
     Active Substance: LENALIDOMIDE
     Indication: OFF LABEL USE
     Dosage: 20 MILLIGRAM
     Route: 048
     Dates: start: 20210331, end: 20210809
  2. DEXAMETHASONE SODIUM PHOSPHATE. [Concomitant]
     Active Substance: DEXAMETHASONE SODIUM PHOSPHATE
     Indication: HERPES ZOSTER
     Dosage: 5 MILLIGRAM
     Route: 041
     Dates: start: 20210728, end: 20210730
  3. ACICLOVIR [Concomitant]
     Active Substance: ACYCLOVIR
     Indication: HERPES ZOSTER
     Route: 061
     Dates: start: 20210728, end: 20210808
  4. MECOBALAMIN [Concomitant]
     Active Substance: METHYLCOBALAMIN
     Indication: HERPES ZOSTER
     Dosage: .5 MILLIGRAM
     Route: 048
     Dates: start: 20210728, end: 20210808
  5. COBAMAMIDE [Concomitant]
     Active Substance: COBAMAMIDE
     Indication: HERPES ZOSTER
     Dosage: 15 MILLIGRAM
     Route: 030
     Dates: start: 20210729, end: 20210806
  6. BGB?3111(ZANUBRUTINIB) [Suspect]
     Active Substance: ZANUBRUTINIB
     Dosage: 320 MILLIGRAM
     Route: 048
     Dates: start: 20210303, end: 20210809
  7. BGB?3111(ZANUBRUTINIB) [Suspect]
     Active Substance: ZANUBRUTINIB
     Indication: DIFFUSE LARGE B-CELL LYMPHOMA
     Dosage: 320 MILLIGRAM
     Route: 048
     Dates: start: 20210303, end: 20210727
  8. FOSCARNET SODIUM. [Concomitant]
     Active Substance: FOSCARNET SODIUM
     Indication: HERPES ZOSTER
     Dosage: 250 MILLILITER
     Route: 041
     Dates: start: 20210727, end: 20210806
  9. PREGABALIN. [Concomitant]
     Active Substance: PREGABALIN
     Indication: HERPES ZOSTER
     Dosage: 75 MILLIGRAM
     Route: 048
     Dates: start: 20210729, end: 20210808
  10. NIKETHAMIDE [Concomitant]
     Active Substance: NIKETHAMIDE
     Indication: PRODUCT USED FOR UNKNOWN INDICATION
     Dosage: DOSE?(0.375 GRAM X2)
     Route: 065
  11. CELLULOSE [Concomitant]
     Active Substance: POWDERED CELLULOSE
     Indication: CONSTIPATION
     Route: 048
     Dates: start: 2018, end: 20210821
  12. VALACYCLOVIR HYDROCHLORIDE. [Concomitant]
     Active Substance: VALACYCLOVIR HYDROCHLORIDE
     Indication: HERPES ZOSTER
     Dosage: 300 MILLIGRAM
     Route: 048
     Dates: start: 20210727, end: 20210808
  13. EPINEPHRINE. [Concomitant]
     Active Substance: EPINEPHRINE
     Indication: PRODUCT USED FOR UNKNOWN INDICATION
     Dosage: DOSE?(1 MG X4)
     Route: 065
  14. LENALIDOMIDE [Suspect]
     Active Substance: LENALIDOMIDE
     Indication: DIFFUSE LARGE B-CELL LYMPHOMA
     Dosage: 20 MILLIGRAM
     Route: 048
     Dates: start: 20210331, end: 20210727

REACTIONS (3)
  - Respiratory failure [Fatal]
  - Anaemia [Unknown]
  - Circulatory collapse [Fatal]

NARRATIVE: CASE EVENT DATE: 202108
